FAERS Safety Report 5351189-1 (Version None)
Quarter: 2007Q2

REPORT INFORMATION
  Report Type: 
  Country: None (occurrence: None)
  Receive Date: 20070608
  Receipt Date: 20070521
  Transmission Date: 20071010
  Serious: Yes (Other)
  Sender: FDA-Public Use
  Company Number: BR-PFIZER INC-2007042244

PATIENT
  Sex: Female

DRUGS (7)
  1. LIPITOR [Suspect]
     Indication: HYPERTRIGLYCERIDAEMIA
     Route: 048
  2. LIPITOR [Suspect]
     Indication: HYPERCHOLESTEROLAEMIA
  3. LOPID [Suspect]
     Indication: BLOOD TRIGLYCERIDES
     Route: 048
  4. LOPID [Suspect]
     Indication: BLOOD CHOLESTEROL
  5. SIMVASTATIN [Suspect]
     Indication: BLOOD TRIGLYCERIDES
     Route: 048
  6. SIMVASTATIN [Suspect]
     Indication: BLOOD CHOLESTEROL
  7. SYNTHROID [Concomitant]
     Route: 048

REACTIONS (5)
  - BLOOD CHOLESTEROL ABNORMAL [None]
  - BLOOD TRIGLYCERIDES ABNORMAL [None]
  - DIZZINESS [None]
  - HYPERTENSION [None]
  - MALAISE [None]
